FAERS Safety Report 21277816 (Version 1)
Quarter: 2022Q3

REPORT INFORMATION
  Report Type: Spontaneous
  Country: US (occurrence: US)
  Receive Date: 20220831
  Receipt Date: 20220831
  Transmission Date: 20221027
  Serious: No
  Sender: FDA-Public Use
  Company Number: US-ABBVIE-22K-163-4292016-00

PATIENT
  Sex: Female
  Weight: 54.480 kg

DRUGS (2)
  1. HUMIRA [Suspect]
     Active Substance: ADALIMUMAB
     Indication: Rheumatoid arthritis
     Route: 058
  2. HUMIRA [Suspect]
     Active Substance: ADALIMUMAB
     Route: 058

REACTIONS (6)
  - Nervousness [Recovered/Resolved]
  - Arthralgia [Not Recovered/Not Resolved]
  - Feeling of despair [Not Recovered/Not Resolved]
  - Constipation [Not Recovered/Not Resolved]
  - Inflammation [Unknown]
  - Dysstasia [Not Recovered/Not Resolved]

NARRATIVE: CASE EVENT DATE: 20210101
